FAERS Safety Report 9240056 (Version 1)
Quarter: 2013Q2

REPORT INFORMATION
  Report Type: Spontaneous
  Country: FR (occurrence: None)
  Receive Date: 20130417
  Receipt Date: 20130417
  Transmission Date: 20140414
  Serious: Yes (Death)
  Sender: FDA-Public Use
  Company Number: 1672458

PATIENT
  Age: 53 Year
  Sex: Female

DRUGS (4)
  1. PACLITAXEL [Suspect]
     Indication: CHEMOTHERAPY
     Route: 042
     Dates: start: 20130227, end: 20130313
  2. DOXORUBICINE [Suspect]
     Indication: CHEMOTHERAPY
     Route: 042
     Dates: start: 20121024, end: 20121226
  3. TAXOTERE [Suspect]
     Indication: CHEMOTHERAPY
     Route: 042
     Dates: start: 20130116, end: 20130206
  4. ENDOXAN [Suspect]
     Indication: CHEMOTHERAPY
     Route: 042
     Dates: start: 20121024, end: 20121226

REACTIONS (19)
  - Circulatory collapse [None]
  - Dilatation ventricular [None]
  - Cardiogenic shock [None]
  - Palpitations [None]
  - Extrasystoles [None]
  - Mitral valve incompetence [None]
  - Pyrexia [None]
  - Asthenia [None]
  - Odynophagia [None]
  - Dysphagia [None]
  - Hepatocellular injury [None]
  - Toxicity to various agents [None]
  - Pleural effusion [None]
  - Cardiomegaly [None]
  - Colitis ischaemic [None]
  - Splenic infarction [None]
  - Hepatic infarction [None]
  - Renal infarct [None]
  - Pericardial effusion [None]
